FAERS Safety Report 23883248 (Version 1)
Quarter: 2024Q2

REPORT INFORMATION
  Report Type: Spontaneous
  Country: CN (occurrence: CN)
  Receive Date: 20240522
  Receipt Date: 20240522
  Transmission Date: 20240716
  Serious: Yes (Disabling)
  Sender: FDA-Public Use
  Company Number: CN-ELI_LILLY_AND_COMPANY-CN202405006281

PATIENT
  Age: 78 Year
  Sex: Male
  Weight: 68 kg

DRUGS (6)
  1. BARICITINIB [Suspect]
     Active Substance: BARICITINIB
     Indication: Coronavirus infection
     Dosage: 2 MG, DAILY
     Route: 048
     Dates: start: 20230615, end: 20230616
  2. BARICITINIB [Suspect]
     Active Substance: BARICITINIB
     Dosage: 4 MG, DAILY
     Route: 048
     Dates: start: 20230616, end: 20230625
  3. NIRMATRELVIR\RITONAVIR [Suspect]
     Active Substance: NIRMATRELVIR\RITONAVIR
     Indication: Coronavirus infection
     Dosage: 3 DOSAGE FORM, BID
     Route: 048
     Dates: start: 20230615, end: 20230625
  4. HEPARIN SODIUM [Concomitant]
     Active Substance: HEPARIN SODIUM
     Indication: Coronavirus infection
     Dosage: 1 DOSAGE FORM, DAILY
     Route: 058
     Dates: start: 20230615, end: 20230625
  5. SODIUM CHLORIDE [Concomitant]
     Active Substance: SODIUM CHLORIDE
     Indication: Hepatic function abnormal
     Dosage: UNK UNK, DAILY
     Route: 041
     Dates: start: 20230615, end: 20230623
  6. METHYLPREDNISOLONE SODIUM SUCCINATE [Concomitant]
     Active Substance: METHYLPREDNISOLONE SODIUM SUCCINATE
     Indication: Coronavirus infection
     Dosage: 40 ML, DAILY
     Route: 041
     Dates: start: 20230615, end: 20230623

REACTIONS (2)
  - Hepatic function abnormal [Recovering/Resolving]
  - Interleukin level increased [Unknown]

NARRATIVE: CASE EVENT DATE: 20230616
